FAERS Safety Report 9053879 (Version 1)
Quarter: 2013Q1

REPORT INFORMATION
  Report Type: Spontaneous
  Country: US (occurrence: None)
  Receive Date: 20130117
  Receipt Date: 20130117
  Transmission Date: 20140127
  Serious: Yes (Disabling, Other)
  Sender: FDA-Public Use
  Company Number: AUR-APL-2012-00646

PATIENT
  Age: 66 Year
  Sex: Female
  Weight: 65.77 kg

DRUGS (6)
  1. CIPROFLOXACIN [Suspect]
     Indication: DIARRHOEA
     Dosage: (500 MG, 2 IN 1 D)
     Route: 048
     Dates: start: 20110319, end: 20110321
  2. IMITREX (SUMATRIPTAN) [Concomitant]
  3. FLUTICASONE PROPIONATE (FLUTICASONE PROPIONATE) [Concomitant]
  4. CHLORDIAZEPDXIDE-CLINIDIUM(CHLORDIAZEPDXIDE W/CLIDINIUM) [Concomitant]
  5. PROGESTERONE (PROGESTERONE) [Concomitant]
  6. BI-EST [Concomitant]

REACTIONS (9)
  - Stress [None]
  - Pain [None]
  - Drug ineffective [None]
  - Tendon pain [None]
  - Gait disturbance [None]
  - Pain in extremity [None]
  - Activities of daily living impaired [None]
  - General physical health deterioration [None]
  - Tenderness [None]
